FAERS Safety Report 13920865 (Version 4)
Quarter: 2018Q4

REPORT INFORMATION
  Report Type: Report from Study
  Country: CA (occurrence: CA)
  Receive Date: 20170830
  Receipt Date: 20181105
  Transmission Date: 20190204
  Serious: Yes (Other)
  Sender: FDA-Public Use
  Company Number: CA-PFIZER INC-2017375607

PATIENT
  Age: 48 Year
  Sex: Female

DRUGS (9)
  1. TECTA [Suspect]
     Active Substance: PANTOPRAZOLE MAGNESIUM
     Indication: DYSPEPSIA
     Dosage: UNK
     Route: 065
  2. ENTYVIO [Suspect]
     Active Substance: VEDOLIZUMAB
     Dosage: 300 MG, CYCLIC (EVERY FOUR WEEKS)
     Route: 042
  3. MEZAVANT [Concomitant]
     Active Substance: MESALAMINE
     Dosage: UNK
  4. ENTYVIO [Suspect]
     Active Substance: VEDOLIZUMAB
     Indication: COLITIS ULCERATIVE
     Dosage: 300 MG, UNK
     Route: 042
     Dates: start: 20170320
  5. ENTYVIO [Suspect]
     Active Substance: VEDOLIZUMAB
     Dosage: 300 MG, UNK
     Route: 042
  6. ENTYVIO [Suspect]
     Active Substance: VEDOLIZUMAB
     Dosage: 300 MG, CYCLIC (EVERY FOUR WEEKS)
     Route: 042
  7. PREDNISONE. [Concomitant]
     Active Substance: PREDNISONE
     Dosage: UNK
  8. TYLENOL [Concomitant]
     Active Substance: ACETAMINOPHEN
     Indication: GASTROINTESTINAL PAIN
     Dosage: UNK
  9. ENTYVIO [Suspect]
     Active Substance: VEDOLIZUMAB
     Dosage: 300 MG, CYCLIC (EVERY FOUR WEEKS)
     Route: 042
     Dates: start: 20170921

REACTIONS (5)
  - Therapy partial responder [Unknown]
  - Anaemia [Not Recovered/Not Resolved]
  - Colitis ulcerative [Unknown]
  - Dyspepsia [Unknown]
  - Condition aggravated [Unknown]

NARRATIVE: CASE EVENT DATE: 20170610
